FAERS Safety Report 5497105-3 (Version None)
Quarter: 2007Q4

REPORT INFORMATION
  Report Type: 
  Country: None (occurrence: None)
  Receive Date: 20071025
  Receipt Date: 20071015
  Transmission Date: 20080405
  Serious: Yes (Other)
  Sender: FDA-Public Use
  Company Number: CA-ASTRAZENECA-2007UW24406

PATIENT
  Age: 55 Year
  Sex: Male

DRUGS (2)
  1. CRESTOR [Suspect]
     Route: 048
  2. FLOMAX [Concomitant]
     Indication: PROSTATE EXAMINATION ABNORMAL

REACTIONS (4)
  - DRUG INEFFECTIVE [None]
  - JOINT SWELLING [None]
  - PROSTATE EXAMINATION ABNORMAL [None]
  - PROSTATE INFECTION [None]
